FAERS Safety Report 5983911-5 (Version None)
Quarter: 2008Q4

REPORT INFORMATION
  Report Type: 
  Country: None (occurrence: None)
  Receive Date: 20081126
  Receipt Date: 20080311
  Transmission Date: 20090506
  Serious: Yes (Other)
  Sender: FDA-Public Use
  Company Number: 2008BH001809

PATIENT
  Age: 91 Year
  Sex: Male

DRUGS (13)
  1. DIANEAL [Suspect]
     Indication: PERITONEAL DIALYSIS
     Dosage: 10 L;EVERY DAY;IP
     Route: 033
  2. DIANEAL [Suspect]
     Indication: PERITONEAL DIALYSIS
     Dosage: IP
     Route: 033
  3. EXTRANEAL [Suspect]
     Indication: PERITONEAL DIALYSIS
     Dosage: 2 L;EVERY DAY;IP
     Route: 033
  4. COUMADIN [Concomitant]
  5. NEPHROCAPS [Concomitant]
  6. PROTONIX [Concomitant]
  7. LIPITOR [Concomitant]
  8. DIGOXIN [Concomitant]
  9. FOLIC ACID [Concomitant]
  10. TOPROL-XL [Concomitant]
  11. LISINOPRIL [Concomitant]
  12. CALCITRIOL [Concomitant]
  13. RENOGEL [Concomitant]

REACTIONS (1)
  - PERITONITIS BACTERIAL [None]
